FAERS Safety Report 6900338-X (Version None)
Quarter: 2010Q3

REPORT INFORMATION
  Report Type: 
  Country: None (occurrence: None)
  Receive Date: 20100803
  Receipt Date: 20100722
  Transmission Date: 20110219
  Serious: Yes (Hospitalization, Other)
  Sender: FDA-Public Use
  Company Number: PHHY2010PT48023

PATIENT
  Age: 30 Year
  Sex: Female

DRUGS (6)
  1. CYCLOSPORINE [Suspect]
     Indication: DERMATITIS ATOPIC
  2. RITUXIMAB [Suspect]
     Indication: DERMATITIS ATOPIC
     Dosage: 1000 MG 2 WEEKS APART
  3. MYCOPHENOLATE MOFETIL [Concomitant]
     Indication: DERMATITIS ATOPIC
  4. CORTICOSTEROIDS FOR SYSTEMIC USE [Concomitant]
     Indication: DERMATITIS ATOPIC
  5. PSORALENS FOR SYSTEMIC USE [Concomitant]
     Indication: DERMATITIS ATOPIC
  6. PUVA [Concomitant]
     Indication: DERMATITIS ATOPIC

REACTIONS (5)
  - CAESAREAN SECTION [None]
  - DERMATITIS ATOPIC [None]
  - DRUG EXPOSURE DURING PREGNANCY [None]
  - PREMATURE LABOUR [None]
  - SKIN LESION [None]
